FAERS Safety Report 12571518 (Version 2)
Quarter: 2016Q3

REPORT INFORMATION
  Report Type: Spontaneous
  Country: JP (occurrence: JP)
  Receive Date: 20160719
  Receipt Date: 20160805
  Transmission Date: 20161109
  Serious: Yes (Hospitalization, Other)
  Sender: FDA-Public Use
  Company Number: JP-ABBVIE-16P-087-1679472-00

PATIENT
  Age: 50 Year
  Sex: Female
  Weight: 57 kg

DRUGS (6)
  1. NORVASC [Concomitant]
     Active Substance: AMLODIPINE BESYLATE
     Indication: BLOOD PRESSURE INCREASED
     Dosage: 5 MG, QD
     Route: 048
     Dates: start: 20140419, end: 20140823
  2. EBRANTIL [Concomitant]
     Active Substance: URAPIDIL
     Indication: URINARY INCONTINENCE
     Dosage: 15 MG, QD
     Route: 048
     Dates: start: 20160702
  3. LEUPLIN [Suspect]
     Active Substance: LEUPROLIDE ACETATE
     Indication: METRORRHAGIA
     Dosage: 1.88 MG, Q4WEEKS
     Route: 058
     Dates: start: 20131115, end: 20140411
  4. FERROMIA [Concomitant]
     Active Substance: FERROUS CITRATE
     Indication: HAEMORRHAGIC ANAEMIA
     Dosage: 50 MG, BID
     Route: 048
     Dates: start: 20131102, end: 20140113
  5. PLANOVAR [Suspect]
     Active Substance: ETHINYL ESTRADIOL\NORGESTREL
     Indication: METRORRHAGIA
     Dosage: 0.55 MG, QD
     Route: 048
     Dates: start: 20160617, end: 20160704
  6. BETANIS [Concomitant]
     Active Substance: MIRABEGRON
     Indication: URINARY INCONTINENCE
     Dosage: 50 MG, QD
     Route: 048
     Dates: start: 20160702

REACTIONS (3)
  - Cerebral infarction [Recovered/Resolved with Sequelae]
  - Carotid artery thrombosis [Recovering/Resolving]
  - Menorrhagia [Unknown]

NARRATIVE: CASE EVENT DATE: 20160704
